FAERS Safety Report 8594486-9 (Version None)
Quarter: 2012Q3

REPORT INFORMATION
  Report Type: 
  Country: None (occurrence: None)
  Receive Date: 20120801
  Receipt Date: 20120718
  Transmission Date: 20120928
  Serious: Yes (Other)
  Sender: FDA-Public Use
  Company Number: ENTC2012-0324

PATIENT
  Age: 44 Year
  Sex: Male

DRUGS (5)
  1. GABAPENTIN [Concomitant]
  2. AZTLECT (RASAGILINE MESYLATE) [Concomitant]
  3. SINEMET [Concomitant]
  4. STALEVO 100 [Suspect]
     Indication: PARKINSON'S DISEASE
     Dosage: 100 MG, ORAL, 750 MG, 5 IN 1 D, ORAL
     Route: 048
  5. AMANTADINE HCL [Concomitant]

REACTIONS (5)
  - BLOOD PRESSURE DECREASED [None]
  - MUSCULOSKELETAL STIFFNESS [None]
  - MUSCLE SPASMS [None]
  - ECONOMIC PROBLEM [None]
  - LOSS OF CONSCIOUSNESS [None]
